FAERS Safety Report 6066207-5 (Version None)
Quarter: 2009Q1

REPORT INFORMATION
  Report Type: 
  Country: None (occurrence: None)
  Receive Date: 20090205
  Receipt Date: 20090129
  Transmission Date: 20090719
  Serious: Yes (Other)
  Sender: FDA-Public Use
  Company Number: PHFR2007GB03332

PATIENT

DRUGS (1)
  1. TEGRETOL [Suspect]
     Indication: EPILEPSY
     Route: 048
     Dates: start: 19900101

REACTIONS (6)
  - AGITATION [None]
  - ATRIOVENTRICULAR BLOCK [None]
  - GASTROINTESTINAL MOTILITY DISORDER [None]
  - MALAISE [None]
  - MOOD SWINGS [None]
  - PRODUCT QUALITY ISSUE [None]
